FAERS Safety Report 12278623 (Version 6)
Quarter: 2019Q3

REPORT INFORMATION
  Report Type: Spontaneous
  Country: US (occurrence: US)
  Receive Date: 20160418
  Receipt Date: 20190808
  Transmission Date: 20191004
  Serious: Yes (Other)
  Sender: FDA-Public Use
  Company Number: US-PFIZER INC-2015437231

PATIENT
  Age: 76 Year
  Sex: Female
  Weight: 86.16 kg

DRUGS (2)
  1. LYRICA [Suspect]
     Active Substance: PREGABALIN
     Indication: FIBROMYALGIA
     Dosage: 200 MG, 2X/DAY
     Route: 048
  2. LYRICA [Suspect]
     Active Substance: PREGABALIN
     Dosage: 200 MG, 1X/DAY

REACTIONS (10)
  - Influenza like illness [Unknown]
  - Wrong technique in product usage process [Unknown]
  - Fall [Unknown]
  - Urticaria [Unknown]
  - Neuralgia [Unknown]
  - Burning sensation [Unknown]
  - Head injury [Unknown]
  - Intentional product use issue [Unknown]
  - Pruritus [Unknown]
  - Pain [Unknown]

NARRATIVE: CASE EVENT DATE: 2017
